FAERS Safety Report 8511905-4 (Version None)
Quarter: 2012Q3

REPORT INFORMATION
  Report Type: 
  Country: None (occurrence: None)
  Receive Date: 20120716
  Receipt Date: 20120709
  Transmission Date: 20120928
  Serious: Yes (Other)
  Sender: FDA-Public Use
  Company Number: BR-PFIZER INC-2012164927

PATIENT
  Age: 28 Year
  Sex: Female

DRUGS (11)
  1. CETOCOL [Concomitant]
     Indication: PAIN
     Dosage: UNK
  2. INTERFERON [Concomitant]
     Indication: PAIN
     Dosage: THREE TIMES PER WEEK
  3. TRAMADOL HYDROCHLORIDE [Suspect]
     Route: 048
  4. TIZANIDINE HYDROCHLORIDE [Concomitant]
     Indication: MUSCLE RELAXANT THERAPY
     Dosage: ONCE A DAY
     Dates: start: 20100101
  5. TIZANIDINE HYDROCHLORIDE [Concomitant]
     Indication: MUSCLE SPASMS
  6. LYRICA [Suspect]
     Indication: PAIN
     Dosage: 75 MG (ONE CAPSULE), 6X/DAY OR 150MG, 3X/DAY
     Route: 048
     Dates: start: 20110101
  7. TOPAMAX [Concomitant]
     Indication: PAIN
     Dosage: ONE CAPSULE, THREE TIMES A DAY
     Dates: start: 20090101
  8. CYMBALTA [Suspect]
     Indication: PAIN
     Dosage: ONE CAPSULE DAILY
  9. AMITRIPTYLINE [Concomitant]
     Indication: PAIN
     Dosage: ONE CAPSULE TWICE A DAY
  10. INTERFERON [Concomitant]
     Indication: MULTIPLE SCLEROSIS
  11. TRAMADOL [Concomitant]
     Indication: PAIN

REACTIONS (3)
  - DRUG DEPENDENCE [None]
  - SOMNOLENCE [None]
  - DRUG INEFFECTIVE [None]
